FAERS Safety Report 18579726 (Version 1)
Quarter: 2020Q4

REPORT INFORMATION
  Report Type: Spontaneous
  Country: BR (occurrence: BR)
  Receive Date: 20201204
  Receipt Date: 20201204
  Transmission Date: 20210114
  Serious: Yes (Other)
  Sender: FDA-Public Use
  Company Number: BR-BAYER-2020-259157

PATIENT
  Age: 0 Day
  Sex: Male
  Weight: 2.94 kg

DRUGS (1)
  1. QLAIRA [Suspect]
     Active Substance: DIENOGEST\ESTRADIOL VALERATE

REACTIONS (3)
  - Cardiac murmur [None]
  - Neonatal diabetes mellitus [None]
  - Foetal exposure during pregnancy [None]

NARRATIVE: CASE EVENT DATE: 20201013
